FAERS Safety Report 17588745 (Version 1)
Quarter: 2020Q1

REPORT INFORMATION
  Report Type: Spontaneous
  Country: US (occurrence: US)
  Receive Date: 20200327
  Receipt Date: 20200327
  Transmission Date: 20200409
  Serious: No
  Sender: FDA-Public Use
  Company Number: US-009507513-2003USA009936

PATIENT
  Age: 24 Week
  Sex: Male
  Weight: .59 kg

DRUGS (3)
  1. NOXAFIL [Suspect]
     Active Substance: POSACONAZOLE
     Indication: MUCORMYCOSIS
     Dosage: 40 ML/KG/D
  2. NOXAFIL [Suspect]
     Active Substance: POSACONAZOLE
     Dosage: 7 MG/KG EVERY 8 HOURS AFTER 7 DAYS OF THERAPY
  3. NOXAFIL [Suspect]
     Active Substance: POSACONAZOLE
     Dosage: 6 MG/KG/EVERY 8 HOURS ON DOL 34

REACTIONS (1)
  - Off label use [Unknown]
